FAERS Safety Report 19764534 (Version 1)
Quarter: 2021Q3

REPORT INFORMATION
  Report Type: Spontaneous
  Country: PT (occurrence: PT)
  Receive Date: 20210830
  Receipt Date: 20210830
  Transmission Date: 20211014
  Serious: Yes (Other)
  Sender: FDA-Public Use
  Company Number: PT-MYLANLABS-2021M1056231

PATIENT
  Age: 52 Year
  Sex: Female

DRUGS (6)
  1. TRASTUZUMAB. [Suspect]
     Active Substance: TRASTUZUMAB
     Dosage: UNK, TRASTUZUMAB + CAPECITABINE
     Route: 065
     Dates: start: 201208, end: 201305
  2. TRASTUZUMAB. [Suspect]
     Active Substance: TRASTUZUMAB
     Dosage: UNK, TRASTUZUMAB + CHEMO
     Route: 065
     Dates: start: 201107, end: 201204
  3. TRASTUZUMAB. [Suspect]
     Active Substance: TRASTUZUMAB
     Indication: PRODUCT USED FOR UNKNOWN INDICATION
     Dosage: UNK
     Route: 065
     Dates: start: 201004, end: 201104
  4. EXEMESTANE. [Suspect]
     Active Substance: EXEMESTANE
     Indication: PRODUCT USED FOR UNKNOWN INDICATION
     Dosage: UNK, TRASTUZUMAB + EXEMESTANE
     Dates: start: 201305, end: 201309
  5. TRASTUZUMAB EMTANSINE [Suspect]
     Active Substance: ADO-TRASTUZUMAB EMTANSINE
     Indication: PRODUCT USED FOR UNKNOWN INDICATION
     Dosage: UNK, 55 CYCLES
     Route: 065
     Dates: start: 20131111, end: 20170130
  6. TRASTUZUMAB. [Suspect]
     Active Substance: TRASTUZUMAB
     Dosage: UNK, TRASTUZUMAB + EXEMESTANE
     Route: 065
     Dates: start: 201305, end: 201309

REACTIONS (4)
  - Therapy partial responder [Unknown]
  - Aspartate aminotransferase increased [Unknown]
  - Jaundice cholestatic [Unknown]
  - Thrombocytopenia [Unknown]

NARRATIVE: CASE EVENT DATE: 201309
